FAERS Safety Report 24718137 (Version 1)
Quarter: 2024Q4

REPORT INFORMATION
  Report Type: Spontaneous
  Country: US (occurrence: None)
  Receive Date: 20241209
  Receipt Date: 20241209
  Transmission Date: 20250115
  Serious: Yes (Life-Threatening, Hospitalization, Disabling, Other)
  Sender: Public
  Company Number: None

PATIENT
  Age: 49 Year
  Sex: Male
  Weight: 136.35 kg

DRUGS (5)
  1. WEGOVY [Suspect]
     Active Substance: SEMAGLUTIDE
     Indication: Weight decreased
     Dosage: OTHER FREQUENCY : ONCE WEEKLY 2.4MG;?
     Route: 030
  2. MOUNJARO [Suspect]
     Active Substance: TIRZEPATIDE
  3. OZEMPIC [Suspect]
     Active Substance: SEMAGLUTIDE
  4. PANTOPRAZOLE SODIUM [Concomitant]
     Active Substance: PANTOPRAZOLE SODIUM
  5. artorostatin [Concomitant]

REACTIONS (4)
  - Illness [None]
  - Hypophagia [None]
  - Follicular thyroid cancer [None]
  - Papillary thyroid cancer [None]

NARRATIVE: CASE EVENT DATE: 20241126
